FAERS Safety Report 7354793-4 (Version None)
Quarter: 2011Q1

REPORT INFORMATION
  Report Type: 
  Country: None (occurrence: None)
  Receive Date: 20110316
  Receipt Date: 20100809
  Transmission Date: 20110831
  Serious: No
  Sender: FDA-Public Use
  Company Number: US-KINGPHARMUSA00001-K201000999

PATIENT
  Age: 66 Year
  Sex: Female
  Weight: 63.492 kg

DRUGS (7)
  1. GLUCOSAMINE /CHOND [Concomitant]
     Indication: SUPPLEMENTATION THERAPY
     Dosage: UNK
  2. CELEBREX [Concomitant]
     Dosage: UNK, PRN
  3. HYDROCHLOROTHIAZIDE [Concomitant]
     Dosage: 25 MG, QD
     Route: 048
  4. ALTACE [Suspect]
     Indication: HYPERTENSION
     Dosage: 2.5 MG, QD
     Route: 048
  5. METFORMIN HCL [Concomitant]
     Indication: DIABETES MELLITUS
     Dosage: 100 MG, BID
  6. LIPITOR [Concomitant]
     Indication: BLOOD CHOLESTEROL INCREASED
     Dosage: 10 MG, QD
  7. SYNTHROID [Concomitant]
     Dosage: 25 MCG, UNK

REACTIONS (2)
  - RASH [None]
  - HEADACHE [None]
